FAERS Safety Report 4800071-4 (Version None)
Quarter: 2005Q4

REPORT INFORMATION
  Report Type: 
  Country: None (occurrence: None)
  Receive Date: 20051017
  Receipt Date: 20050714
  Transmission Date: 20060501
  Serious: Yes (Life-Threatening, Hospitalization)
  Sender: FDA-Public Use
  Company Number: 2005AP03876

PATIENT
  Age: 26933 Day
  Sex: Female

DRUGS (16)
  1. SEROQUEL [Suspect]
     Indication: DEPRESSION
     Route: 048
     Dates: start: 20050301, end: 20050403
  2. SEROQUEL [Suspect]
     Indication: DELIRIUM
     Route: 048
     Dates: start: 20050301, end: 20050403
  3. SEROQUEL [Suspect]
     Dosage: RESUMED AT A DECREASED DOSAGE
     Route: 048
     Dates: start: 20050426, end: 20050516
  4. SEROQUEL [Suspect]
     Dosage: RESUMED AT A DECREASED DOSAGE
     Route: 048
     Dates: start: 20050426, end: 20050516
  5. SERENACE [Suspect]
     Route: 048
     Dates: start: 20050411, end: 20050516
  6. SERENACE [Suspect]
     Route: 048
     Dates: start: 20050603, end: 20050628
  7. TETRAMIDE [Suspect]
     Indication: DEPRESSION
     Route: 048
     Dates: start: 20050406, end: 20050515
  8. TETRAMIDE [Suspect]
     Route: 048
     Dates: start: 20050516, end: 20050808
  9. GRAMALIL [Suspect]
     Indication: DELIRIUM
     Route: 048
     Dates: start: 20050407, end: 20050705
  10. TECIPUL [Concomitant]
     Indication: DEPRESSION
     Route: 048
     Dates: start: 20041001, end: 20050301
  11. AMOXAN [Concomitant]
     Indication: DEPRESSION
     Route: 048
     Dates: start: 20050301, end: 20050403
  12. RESLIN [Concomitant]
     Indication: DEPRESSION
     Route: 048
     Dates: start: 20050301, end: 20050403
  13. HALCION [Concomitant]
     Indication: DEPRESSION
     Route: 048
     Dates: start: 20050427, end: 20050630
  14. ATARAX [Concomitant]
     Indication: DEPRESSION
     Route: 048
     Dates: start: 20050414, end: 20050620
  15. PURSENNID [Concomitant]
     Indication: CONSTIPATION
     Route: 048
     Dates: start: 20050407, end: 20050621
  16. ANTIDEPRESSANT (UNSPECIFIED) [Concomitant]
     Indication: DEPRESSION

REACTIONS (5)
  - AGRANULOCYTOSIS [None]
  - C-REACTIVE PROTEIN INCREASED [None]
  - HYPERCREATININAEMIA [None]
  - PYREXIA [None]
  - WHITE BLOOD CELL COUNT INCREASED [None]
